FAERS Safety Report 6224916-9 (Version None)
Quarter: 2009Q2

REPORT INFORMATION
  Report Type: 
  Country: None (occurrence: None)
  Receive Date: 20090612
  Receipt Date: 20090417
  Transmission Date: 20091009
  Serious: No
  Sender: FDA-Public Use
  Company Number: US-ABBOTT-09P-163-0565907-00

PATIENT
  Sex: Female

DRUGS (1)
  1. HUMIRA [Suspect]
     Indication: CROHN'S DISEASE
     Dates: start: 20081017

REACTIONS (5)
  - ECZEMA [None]
  - HYPERSENSITIVITY [None]
  - NASAL ULCER [None]
  - OPEN WOUND [None]
  - RASH PAPULAR [None]
